FAERS Safety Report 6361569-3 (Version None)
Quarter: 2009Q3

REPORT INFORMATION
  Report Type: 
  Country: None (occurrence: None)
  Receive Date: 20090915
  Receipt Date: 20090915
  Transmission Date: 20100115
  Serious: No
  Sender: FDA-Public Use
  Company Number: None

PATIENT
  Sex: Female
  Weight: 81.6475 kg

DRUGS (2)
  1. AVELOX [Suspect]
     Indication: SINUSITIS
     Dosage: PO  ( ONE ROUND IN JAN 2007)
     Route: 048
     Dates: start: 20070101
  2. LEVAQUIN [Suspect]
     Indication: BRONCHITIS
     Dosage: PO ( 2 ROUNDS IN AUG 2009 )
     Dates: start: 20090801

REACTIONS (9)
  - ARTHRALGIA [None]
  - DEPRESSION [None]
  - EPIGLOTTIC CYST [None]
  - HYPOVITAMINOSIS [None]
  - MYALGIA [None]
  - SLEEP APNOEA SYNDROME [None]
  - TENDONITIS [None]
  - THYROID NEOPLASM [None]
  - VOCAL CORD PARALYSIS [None]
